FAERS Safety Report 15604111 (Version 2)
Quarter: 2018Q4

REPORT INFORMATION
  Report Type: Report from Study
  Country: US (occurrence: US)
  Receive Date: 20181110
  Receipt Date: 20181115
  Transmission Date: 20190205
  Serious: Yes (Life-Threatening, Hospitalization, Disabling, Other)
  Sender: FDA-Public Use
  Company Number: US-BRISTOL-MYERS SQUIBB COMPANY-BMS-2018-105343

PATIENT
  Age: 67 Year
  Sex: Male

DRUGS (2)
  1. IPILIMUMAB [Suspect]
     Active Substance: IPILIMUMAB
     Indication: MALIGNANT MELANOMA
     Dosage: UNK
     Route: 065
  2. NIVOLUMAB [Suspect]
     Active Substance: NIVOLUMAB
     Indication: MALIGNANT MELANOMA
     Dosage: UNK
     Route: 065

REACTIONS (9)
  - Clavicle fracture [Recovering/Resolving]
  - Fall [Unknown]
  - Malnutrition [Unknown]
  - Pain [Unknown]
  - Toxic encephalopathy [Unknown]
  - Accidental overdose [Unknown]
  - Gastrointestinal disorder [Unknown]
  - Mental status changes [Recovered/Resolved]
  - Cervical vertebral fracture [Recovering/Resolving]

NARRATIVE: CASE EVENT DATE: 201810
